FAERS Safety Report 25819348 (Version 1)
Quarter: 2025Q3

REPORT INFORMATION
  Report Type: Spontaneous
  Country: US (occurrence: US)
  Receive Date: 20250918
  Receipt Date: 20250918
  Transmission Date: 20251020
  Serious: No
  Sender: SANOFI AVENTIS
  Company Number: US-SA-2025SA277401

PATIENT
  Sex: Male

DRUGS (14)
  1. DUPIXENT [Suspect]
     Active Substance: DUPILUMAB
     Indication: Asthma
     Dosage: 300 MG, QOW
     Route: 058
  2. Artificial Tears [Concomitant]
  3. ASPIRIN [Concomitant]
     Active Substance: ASPIRIN
  4. BUDESONIDE [Concomitant]
     Active Substance: BUDESONIDE
  5. COENZYME Q10 [Concomitant]
     Active Substance: DIETARY SUPPLEMENT\UBIDECARENONE
  6. COSOPT [Concomitant]
     Active Substance: DORZOLAMIDE HYDROCHLORIDE\TIMOLOL MALEATE
  7. GLUCOSAMINE [Concomitant]
     Active Substance: GLUCOSAMINE
  8. LATANOPROST [Concomitant]
     Active Substance: LATANOPROST
  9. LEVOCETIRIZINE [Concomitant]
     Active Substance: LEVOCETIRIZINE
  10. PROSCAR [Concomitant]
     Active Substance: FINASTERIDE
  11. SIMVASTATIN [Concomitant]
     Active Substance: SIMVASTATIN
  12. SINGULAIR [Concomitant]
     Active Substance: MONTELUKAST SODIUM
  13. TAMSULOSIN [Concomitant]
     Active Substance: TAMSULOSIN
  14. TYLENOL [Concomitant]
     Active Substance: ACETAMINOPHEN

REACTIONS (2)
  - Arthritis [Unknown]
  - Eye irritation [Unknown]
